FAERS Safety Report 24896411 (Version 1)
Quarter: 2025Q1

REPORT INFORMATION
  Report Type: Report from Study
  Country: DE (occurrence: DE)
  Receive Date: 20250128
  Receipt Date: 20250128
  Transmission Date: 20250409
  Serious: Yes (Hospitalization)
  Sender: TEVA
  Company Number: DE-CELGENE-DEU-2016120018

PATIENT
  Age: 76 Year
  Sex: Female
  Weight: 59 kg

DRUGS (16)
  1. CARBOPLATIN [Suspect]
     Active Substance: CARBOPLATIN
     Indication: Non-small cell lung cancer
     Route: 065
     Dates: start: 20160928, end: 20161214
  2. ABRAXANE [Suspect]
     Active Substance: PACLITAXEL
     Indication: Non-small cell lung cancer
     Route: 041
     Dates: start: 20161109, end: 20161221
  3. ABRAXANE [Suspect]
     Active Substance: PACLITAXEL
     Indication: Non-small cell lung cancer
     Route: 041
     Dates: start: 20160928
  4. LEVOFLOXACIN [Concomitant]
     Active Substance: LEVOFLOXACIN
     Indication: Product used for unknown indication
     Route: 065
     Dates: start: 20161130, end: 20161213
  5. DIAZEPAM [Concomitant]
     Active Substance: DIAZEPAM
     Indication: Insomnia
     Dosage: DOSAGE TEXT: 1 MG
     Route: 065
  6. HCT-BETA [Concomitant]
     Indication: Hypertonia
     Dosage: DOSAGE TEXT: 12.5 MG
     Route: 065
  7. Delix [Concomitant]
     Indication: Hypertonia
     Dosage: DOSAGE TEXT: 5 MG
     Route: 065
  8. Carmen [Concomitant]
     Indication: Hypertonia
     Dosage: DOSAGE TEXT: 10 MG
     Route: 065
  9. ERYPO [Concomitant]
     Indication: Anaemia
     Route: 058
     Dates: start: 20161104, end: 20161104
  10. INSULIN HUMAN [Concomitant]
     Active Substance: INSULIN HUMAN
     Indication: Diabetes mellitus
     Route: 065
  11. PANTOZOL [Concomitant]
     Active Substance: PANTOPRAZOLE SODIUM
     Indication: Dyspepsia
     Dosage: DOSAGE TEXT: 80 MG
     Route: 065
  12. BISOPROLOL-RATIOPHARM [Concomitant]
     Indication: Myocardial infarction
     Dosage: DOSAGE TEXT: 5 MG
     Route: 065
  13. MIRTAZAPIN BETA [Concomitant]
     Indication: Insomnia
     Dosage: DOSAGE TEXT: 7.5 MG
     Route: 065
  14. INSULIN HUMAN [Concomitant]
     Active Substance: INSULIN HUMAN
     Indication: Diabetes mellitus
     Route: 065
  15. ASPIRIN [Concomitant]
     Active Substance: ASPIRIN
     Indication: Cerebrovascular accident
     Route: 065
  16. ISDN-RATIOPHARM [Concomitant]
     Indication: Myocardial infarction
     Dosage: DOSAGE TEXT: 40 MG
     Route: 065

REACTIONS (1)
  - Subileus [Recovered/Resolved]

NARRATIVE: CASE EVENT DATE: 20161130
